FAERS Safety Report 6760860-6 (Version None)
Quarter: 2010Q2

REPORT INFORMATION
  Report Type: 
  Country: None (occurrence: None)
  Receive Date: 20100608
  Receipt Date: 20100601
  Transmission Date: 20101027
  Serious: Yes (Disabling)
  Sender: FDA-Public Use
  Company Number: PHHO2010NZ06456

PATIENT

DRUGS (2)
  1. STI571/CGP57148B T35717+TAB [Suspect]
     Indication: CHRONIC MYELOID LEUKAEMIA
     Dosage: 600 MG, QD
     Route: 048
     Dates: start: 20091027, end: 20091222
  2. STI571/CGP57148B T35717+TAB [Suspect]
     Dosage: 400 MG, QD
     Route: 048
     Dates: start: 20100104

REACTIONS (5)
  - DRUG INTOLERANCE [None]
  - DRY SKIN [None]
  - LOCALISED OEDEMA [None]
  - OEDEMA PERIPHERAL [None]
  - RASH [None]
